FAERS Safety Report 11343168 (Version 1)
Quarter: 2015Q3

REPORT INFORMATION
  Report Type: Report from Study
  Country: US (occurrence: US)
  Receive Date: 20150806
  Receipt Date: 20150806
  Transmission Date: 20151125
  Serious: Yes (Hospitalization)
  Sender: FDA-Public Use
  Company Number: US-ABBVIE-15K-163-1437336-00

PATIENT
  Age: 72 Year
  Sex: Male

DRUGS (7)
  1. HUMIRA [Suspect]
     Active Substance: ADALIMUMAB
     Indication: OSTEOARTHRITIS
  2. MAGNESIUM [Concomitant]
     Active Substance: MAGNESIUM
     Indication: PRODUCT USED FOR UNKNOWN INDICATION
  3. HUMIRA [Suspect]
     Active Substance: ADALIMUMAB
     Indication: RHEUMATOID ARTHRITIS
     Route: 058
     Dates: start: 2007, end: 201507
  4. MELOXICAM. [Concomitant]
     Active Substance: MELOXICAM
     Indication: PRODUCT USED FOR UNKNOWN INDICATION
  5. CRESTOR [Concomitant]
     Active Substance: ROSUVASTATIN CALCIUM
     Indication: BLOOD CHOLESTEROL INCREASED
  6. PLAVIX [Concomitant]
     Active Substance: CLOPIDOGREL BISULFATE
     Indication: ANTICOAGULANT THERAPY
  7. PREDNISONE. [Concomitant]
     Active Substance: PREDNISONE
     Indication: RHEUMATOID ARTHRITIS

REACTIONS (5)
  - Arthralgia [Not Recovered/Not Resolved]
  - Cataract [Not Recovered/Not Resolved]
  - Arthritis infective [Recovering/Resolving]
  - Ligament sprain [Recovering/Resolving]
  - Skin discolouration [Recovering/Resolving]

NARRATIVE: CASE EVENT DATE: 201507
